FAERS Safety Report 6259819-7 (Version None)
Quarter: 2009Q3

REPORT INFORMATION
  Report Type: 
  Country: None (occurrence: None)
  Receive Date: 20090706
  Receipt Date: 20090706
  Transmission Date: 20100115
  Serious: No
  Sender: FDA-Public Use
  Company Number: None

PATIENT
  Age: 47 Year
  Sex: Male
  Weight: 65.7716 kg

DRUGS (1)
  1. ZICAM SWAB MATRIXX [Suspect]
     Indication: NASOPHARYNGITIS
     Dosage: AS PRESCRIBED
     Dates: start: 20081107, end: 20090701

REACTIONS (1)
  - ANOSMIA [None]
